FAERS Safety Report 24621022 (Version 2)
Quarter: 2024Q4

REPORT INFORMATION
  Report Type: Spontaneous
  Country: TW (occurrence: TW)
  Receive Date: 20241114
  Receipt Date: 20241118
  Transmission Date: 20250114
  Serious: Yes (Death, Hospitalization)
  Sender: PFIZER
  Company Number: TW-PFIZER INC-PV202400129644

PATIENT
  Sex: Female

DRUGS (1)
  1. XELJANZ [Suspect]
     Active Substance: TOFACITINIB CITRATE
     Indication: Rheumatoid arthritis
     Dosage: 5 MG, 2X/DAY
     Route: 048
     Dates: start: 202407, end: 20241005

REACTIONS (1)
  - Liver function test abnormal [Fatal]

NARRATIVE: CASE EVENT DATE: 20241005
